FAERS Safety Report 7561738-0 (Version None)
Quarter: 2011Q2

REPORT INFORMATION
  Report Type: 
  Country: None (occurrence: None)
  Receive Date: 20110621
  Receipt Date: 20110613
  Transmission Date: 20111010
  Serious: Yes (Death, Disabling)
  Sender: FDA-Public Use
  Company Number: JP-AMGEN-KDC444052

PATIENT
  Age: 62 Year
  Sex: Male
  Weight: 69 kg

DRUGS (23)
  1. MICARDIS [Concomitant]
     Route: 048
  2. FAMOTIDINE [Concomitant]
     Route: 048
  3. MAGMITT [Concomitant]
     Dosage: UNK UNK, UNK
     Route: 048
  4. PANITUMUMAB [Suspect]
     Dosage: 3.6 MG/KG, Q2WK
     Route: 041
     Dates: start: 20100914, end: 20101012
  5. FLUOROURACIL [Concomitant]
     Indication: COLORECTAL CANCER
     Route: 040
     Dates: start: 20100720, end: 20110118
  6. ACHROMYCIN [Concomitant]
     Dosage: UNK UNK, UNK
     Route: 062
  7. HERLAT L [Concomitant]
     Dosage: UNK UNK, UNK
     Route: 048
  8. MYSER [Concomitant]
     Route: 062
  9. PYDOXAL [Concomitant]
     Route: 048
  10. PANITUMUMAB [Suspect]
     Indication: COLORECTAL CANCER METASTATIC
     Dosage: 6 MG/KG, Q2WK
     Route: 041
     Dates: start: 20100720, end: 20100720
  11. IRINOTECAN HCL [Concomitant]
     Indication: COLORECTAL CANCER
     Route: 041
     Dates: start: 20100720, end: 20110118
  12. LEUCOVORIN CALCIUM [Concomitant]
     Indication: COLORECTAL CANCER
     Route: 041
     Dates: start: 20100720, end: 20110118
  13. VOALLA [Concomitant]
     Dosage: UNK UNK, UNK
     Route: 062
  14. MINOCYCLINE HCL [Concomitant]
     Dosage: UNK UNK, UNK
     Route: 048
  15. CELESTAMINE TAB [Concomitant]
     Dosage: UNK UNK, UNK
     Route: 048
  16. MAGMITT [Concomitant]
     Route: 048
  17. HERLAT L [Concomitant]
     Route: 048
  18. PANITUMUMAB [Suspect]
     Dosage: 3.6 MG/KG, Q2WK
     Route: 041
     Dates: start: 20110118, end: 20110118
  19. FLUOROURACIL [Concomitant]
     Route: 041
     Dates: start: 20100720, end: 20110118
  20. MICARDIS [Concomitant]
     Dosage: UNK UNK, UNK
     Route: 048
  21. LOCOID [Concomitant]
     Route: 062
  22. PANITUMUMAB [Suspect]
     Dosage: 3.6 MG/KG, Q2WK
     Route: 041
     Dates: start: 20101109, end: 20101130
  23. PREDNISOLONE [Concomitant]
     Route: 048

REACTIONS (4)
  - COLORECTAL CANCER [None]
  - ABDOMINAL DISCOMFORT [None]
  - OEDEMA [None]
  - DERMATITIS ACNEIFORM [None]
